FAERS Safety Report 8505012-4 (Version None)
Quarter: 2012Q3

REPORT INFORMATION
  Report Type: 
  Country: None (occurrence: None)
  Receive Date: 20120712
  Receipt Date: 20120702
  Transmission Date: 20120928
  Serious: Yes (Other)
  Sender: FDA-Public Use
  Company Number: TR-FRI-1000036821

PATIENT
  Age: 7 Year
  Sex: Female

DRUGS (1)
  1. PROPRANOLOL HCL [Suspect]
     Indication: SUPRAVENTRICULAR TACHYCARDIA

REACTIONS (1)
  - ACCELERATED IDIOVENTRICULAR RHYTHM [None]
